FAERS Safety Report 9786801 (Version 2)
Quarter: 2014Q1

REPORT INFORMATION
  Report Type: Spontaneous
  Country: US (occurrence: US)
  Receive Date: 20131227
  Receipt Date: 20140131
  Transmission Date: 20141002
  Serious: Yes (Life-Threatening, Hospitalization)
  Sender: FDA-Public Use
  Company Number: US-B.I. PHARMACEUTICALS,INC./RIDGEFIELD-2013-BI-43779BP

PATIENT
  Age: 75 Year
  Sex: Male
  Weight: 102 kg

DRUGS (5)
  1. PRADAXA [Suspect]
     Indication: ATRIAL FLUTTER
     Dosage: 300 MG
     Route: 055
     Dates: start: 2012
  2. PRAVASTATIN [Concomitant]
     Indication: BLOOD CHOLESTEROL INCREASED
     Dosage: 40 MG
  3. METPROLOL [Concomitant]
     Indication: HYPERTENSION
     Dosage: 50 MG
  4. CARBAMAZEPINE [Concomitant]
     Indication: TRIGEMINAL NEURALGIA
     Dosage: 200 MG
  5. MULTAQ [Concomitant]
     Indication: ATRIAL FLUTTER
     Dosage: 400 MG

REACTIONS (3)
  - Transient ischaemic attack [Unknown]
  - Condition aggravated [Unknown]
  - Off label use [Unknown]
